FAERS Safety Report 4612657-0 (Version None)
Quarter: 2005Q1

REPORT INFORMATION
  Report Type: 
  Country: None (occurrence: None)
  Receive Date: 20050316
  Receipt Date: 20050303
  Transmission Date: 20050727
  Serious: Yes (Hospitalization)
  Sender: FDA-Public Use
  Company Number: 10424

PATIENT
  Age: 67 Year
  Sex: Female

DRUGS (4)
  1. LEUCOVORIN CALCIUM [Suspect]
     Indication: COLORECTAL CANCER
     Dosage: 400 MG/M2 FORTNIGHTLY IV
     Route: 042
     Dates: start: 20041004, end: 20050207
  2. FLUOROURACIL [Suspect]
     Indication: COLORECTAL CANCER
     Dosage: 400 MG/M2 FORTNIGHTLY
     Dates: start: 20041004, end: 20050207
  3. CETUXIMAB [Suspect]
     Indication: COLORECTAL CANCER
     Dosage: 250 MG/M2 WEEKLY IV
     Route: 042
     Dates: start: 20041004, end: 20050207
  4. OXALIPLATIN [Suspect]
     Indication: COLORECTAL CANCER
     Dosage: 65 MG/M2 FORTNIGHLTY
     Dates: start: 20041004, end: 20050207

REACTIONS (4)
  - ACTIVITIES OF DAILY LIVING IMPAIRED [None]
  - ASTHENIA [None]
  - DEHYDRATION [None]
  - DIARRHOEA [None]
